FAERS Safety Report 18115662 (Version 3)
Quarter: 2022Q3

REPORT INFORMATION
  Report Type: Spontaneous
  Country: US (occurrence: None)
  Receive Date: 20200805
  Receipt Date: 20220701
  Transmission Date: 20221026
  Serious: Yes (Hospitalization, Disabling, Other)
  Sender: FDA-Public Use
  Company Number: 2020SE95731

PATIENT
  Age: 20254 Day
  Sex: Male
  Weight: 167.8 kg

DRUGS (89)
  1. FARXIGA [Suspect]
     Active Substance: DAPAGLIFLOZIN PROPANEDIOL
     Indication: Type 2 diabetes mellitus
     Route: 048
     Dates: start: 20140922
  2. FARXIGA [Suspect]
     Active Substance: DAPAGLIFLOZIN PROPANEDIOL
     Indication: Weight decreased
     Route: 048
     Dates: start: 20140922
  3. FARXIGA [Suspect]
     Active Substance: DAPAGLIFLOZIN PROPANEDIOL
     Indication: Blood pressure decreased
     Route: 048
     Dates: start: 20140922
  4. FARXIGA [Suspect]
     Active Substance: DAPAGLIFLOZIN PROPANEDIOL
     Indication: Type 2 diabetes mellitus
     Route: 048
     Dates: start: 20140716, end: 20171204
  5. FARXIGA [Suspect]
     Active Substance: DAPAGLIFLOZIN PROPANEDIOL
     Indication: Weight decreased
     Route: 048
     Dates: start: 20140716, end: 20171204
  6. FARXIGA [Suspect]
     Active Substance: DAPAGLIFLOZIN PROPANEDIOL
     Indication: Blood pressure decreased
     Route: 048
     Dates: start: 20140716, end: 20171204
  7. FARXIGA [Suspect]
     Active Substance: DAPAGLIFLOZIN PROPANEDIOL
     Indication: Type 2 diabetes mellitus
     Route: 048
     Dates: start: 20141017
  8. FARXIGA [Suspect]
     Active Substance: DAPAGLIFLOZIN PROPANEDIOL
     Indication: Weight decreased
     Route: 048
     Dates: start: 20141017
  9. FARXIGA [Suspect]
     Active Substance: DAPAGLIFLOZIN PROPANEDIOL
     Indication: Blood pressure decreased
     Route: 048
     Dates: start: 20141017
  10. FARXIGA [Suspect]
     Active Substance: DAPAGLIFLOZIN PROPANEDIOL
     Indication: Type 2 diabetes mellitus
     Route: 048
     Dates: start: 20141119
  11. FARXIGA [Suspect]
     Active Substance: DAPAGLIFLOZIN PROPANEDIOL
     Indication: Weight decreased
     Route: 048
     Dates: start: 20141119
  12. FARXIGA [Suspect]
     Active Substance: DAPAGLIFLOZIN PROPANEDIOL
     Indication: Blood pressure decreased
     Route: 048
     Dates: start: 20141119
  13. FARXIGA [Suspect]
     Active Substance: DAPAGLIFLOZIN PROPANEDIOL
     Indication: Type 2 diabetes mellitus
     Route: 048
     Dates: start: 20141218
  14. FARXIGA [Suspect]
     Active Substance: DAPAGLIFLOZIN PROPANEDIOL
     Indication: Weight decreased
     Route: 048
     Dates: start: 20141218
  15. FARXIGA [Suspect]
     Active Substance: DAPAGLIFLOZIN PROPANEDIOL
     Indication: Blood pressure decreased
     Route: 048
     Dates: start: 20141218
  16. FARXIGA [Suspect]
     Active Substance: DAPAGLIFLOZIN PROPANEDIOL
     Indication: Type 2 diabetes mellitus
     Route: 048
     Dates: start: 20150211
  17. FARXIGA [Suspect]
     Active Substance: DAPAGLIFLOZIN PROPANEDIOL
     Indication: Weight decreased
     Route: 048
     Dates: start: 20150211
  18. FARXIGA [Suspect]
     Active Substance: DAPAGLIFLOZIN PROPANEDIOL
     Indication: Blood pressure decreased
     Route: 048
     Dates: start: 20150211
  19. FARXIGA [Suspect]
     Active Substance: DAPAGLIFLOZIN PROPANEDIOL
     Indication: Type 2 diabetes mellitus
     Route: 048
     Dates: start: 20150306
  20. FARXIGA [Suspect]
     Active Substance: DAPAGLIFLOZIN PROPANEDIOL
     Indication: Weight decreased
     Route: 048
     Dates: start: 20150306
  21. FARXIGA [Suspect]
     Active Substance: DAPAGLIFLOZIN PROPANEDIOL
     Indication: Blood pressure decreased
     Route: 048
     Dates: start: 20150306
  22. FARXIGA [Suspect]
     Active Substance: DAPAGLIFLOZIN PROPANEDIOL
     Indication: Type 2 diabetes mellitus
     Route: 048
     Dates: start: 20150408
  23. FARXIGA [Suspect]
     Active Substance: DAPAGLIFLOZIN PROPANEDIOL
     Indication: Weight decreased
     Route: 048
     Dates: start: 20150408
  24. FARXIGA [Suspect]
     Active Substance: DAPAGLIFLOZIN PROPANEDIOL
     Indication: Blood pressure decreased
     Route: 048
     Dates: start: 20150408
  25. PRADAXA [Concomitant]
     Active Substance: DABIGATRAN ETEXILATE MESYLATE
     Dates: start: 20170221
  26. SILVER SULFADIAZINE [Concomitant]
     Active Substance: SILVER SULFADIAZINE
     Dates: start: 20170307
  27. GABAPENTIN [Concomitant]
     Active Substance: GABAPENTIN
     Dates: start: 20170324
  28. EDARBYCLOR [Concomitant]
     Active Substance: AZILSARTAN KAMEDOXOMIL\CHLORTHALIDONE
     Dates: start: 20170324
  29. PRAVASTATIN [Concomitant]
     Active Substance: PRAVASTATIN
     Dates: start: 20170327
  30. FUROSEMIDE [Concomitant]
     Active Substance: FUROSEMIDE
     Dates: start: 20170407
  31. BYSTOLIC [Concomitant]
     Active Substance: NEBIVOLOL HYDROCHLORIDE
     Dates: start: 20170505
  32. SULFAMETHOXAZOLE [Concomitant]
     Active Substance: SULFAMETHOXAZOLE
     Dates: start: 20171023
  33. JANUVIA [Concomitant]
     Active Substance: SITAGLIPTIN PHOSPHATE
     Dates: start: 20171025
  34. MUPIROCIN [Concomitant]
     Active Substance: MUPIROCIN
     Dates: start: 20171101
  35. DOXYCYCLINE [Concomitant]
     Active Substance: DOXYCYCLINE
     Dates: start: 20180112
  36. XARELTO [Concomitant]
     Active Substance: RIVAROXABAN
     Dates: start: 20180301
  37. UNSPECIFIED INGREDIENT [Concomitant]
     Active Substance: UNSPECIFIED INGREDIENT
     Dates: start: 20180301
  38. AMLODIPINE BESYLATE [Concomitant]
     Active Substance: AMLODIPINE BESYLATE
     Dates: start: 20130305
  39. SPIRONOLACTONE [Concomitant]
     Active Substance: SPIRONOLACTONE
     Dates: start: 20130305
  40. CEPHALEXIN [Concomitant]
     Active Substance: CEPHALEXIN
     Dates: start: 20130305
  41. VENTOLIN [Concomitant]
     Active Substance: ALBUTEROL SULFATE
     Dates: start: 20130305
  42. LEVOFLOXACIN [Concomitant]
     Active Substance: LEVOFLOXACIN
     Dates: start: 20151209
  43. OXYCODONE [Concomitant]
     Active Substance: OXYCODONE
     Dates: start: 20160412
  44. FLUCONAZOLE [Concomitant]
     Active Substance: FLUCONAZOLE
     Dates: start: 20160412
  45. AZACTAM [Concomitant]
     Active Substance: AZTREONAM
     Dates: start: 20151226
  46. VANCOCIN [Concomitant]
     Active Substance: VANCOMYCIN HYDROCHLORIDE
  47. PROTONIX [Concomitant]
     Active Substance: PANTOPRAZOLE SODIUM
  48. CLEOCIN [Concomitant]
     Active Substance: CLINDAMYCIN PHOSPHATE
  49. LEVOPHED [Concomitant]
     Active Substance: NOREPINEPHRINE BITARTRATE
  50. PITRESSIN [Concomitant]
     Active Substance: VASOPRESSIN
  51. PRECEDEX [Concomitant]
     Active Substance: DEXMEDETOMIDINE HYDROCHLORIDE
  52. DIPRIVAN [Concomitant]
     Active Substance: PROPOFOL
  53. SUBLIMAZE [Concomitant]
     Active Substance: FENTANYL CITRATE
  54. LOPRESSOR [Concomitant]
     Active Substance: METOPROLOL TARTRATE
  55. APRESOLINE HYDROCHLORIDE [Concomitant]
     Active Substance: HYDRALAZINE HYDROCHLORIDE
  56. BREVIBLOC [Concomitant]
     Active Substance: ESMOLOL HYDROCHLORIDE
  57. TRANDATE [Concomitant]
     Active Substance: LABETALOL HYDROCHLORIDE
  58. NARCAN [Concomitant]
     Active Substance: NALOXONE HYDROCHLORIDE
  59. PERIDEX [Concomitant]
     Active Substance: CHLORHEXIDINE GLUCONATE
  60. COREG [Concomitant]
     Active Substance: CARVEDILOL
  61. DILAUDID [Concomitant]
     Active Substance: HYDROMORPHONE HYDROCHLORIDE
  62. CARDENE [Concomitant]
     Active Substance: NICARDIPINE HYDROCHLORIDE
  63. CLONAZEPAM [Concomitant]
     Active Substance: CLONAZEPAM
  64. METFORMIN [Concomitant]
     Active Substance: METFORMIN HYDROCHLORIDE
  65. MELOXICAM [Concomitant]
     Active Substance: MELOXICAM
  66. BENZONATATE [Concomitant]
     Active Substance: BENZONATATE
  67. MIRALAX [Concomitant]
     Active Substance: POLYETHYLENE GLYCOL 3350
  68. LANTUS [Concomitant]
     Active Substance: INSULIN GLARGINE
  69. CLONIDINE [Concomitant]
     Active Substance: CLONIDINE
  70. HYDROXYZINE HYDROCHLORIDE [Concomitant]
     Active Substance: HYDROXYZINE HYDROCHLORIDE
  71. METRONIDAZOLE [Concomitant]
     Active Substance: METRONIDAZOLE
  72. CIPROFLOXACIN HYDROCHLORIDE [Concomitant]
     Active Substance: CIPROFLOXACIN HYDROCHLORIDE
  73. NYSTOP [Concomitant]
     Active Substance: NYSTATIN
  74. METOLAZONE [Concomitant]
     Active Substance: METOLAZONE
  75. ONDANSETRON [Concomitant]
     Active Substance: ONDANSETRON
  76. VITAMINS [Concomitant]
     Active Substance: VITAMINS
  77. ASCORBIC ACID [Concomitant]
     Active Substance: ASCORBIC ACID
  78. DOCUSATE SODIUM\SENNOSIDES [Concomitant]
     Active Substance: DOCUSATE SODIUM\SENNOSIDES
  79. AMOXICILLIN\CLAVULANATE POTASSIUM [Concomitant]
     Active Substance: AMOXICILLIN\CLAVULANATE POTASSIUM
  80. IBUPROFEN [Concomitant]
     Active Substance: IBUPROFEN
  81. CALCIUM ALGINATE [Concomitant]
     Active Substance: CALCIUM ALGINATE
  82. DEXTROSE [Concomitant]
     Active Substance: DEXTROSE
  83. GLUCAGON [Concomitant]
     Active Substance: GLUCAGON
  84. HUMALOG [Concomitant]
     Active Substance: INSULIN LISPRO
  85. ZOSYN [Concomitant]
     Active Substance: PIPERACILLIN SODIUM\TAZOBACTAM SODIUM
  86. LIDOCAINE [Concomitant]
     Active Substance: LIDOCAINE
  87. ACETAMINOPHEN [Concomitant]
     Active Substance: ACETAMINOPHEN
     Dates: start: 20170324
  88. SODIUM CHLORIDE [Concomitant]
     Active Substance: SODIUM CHLORIDE
  89. MIDAZOLAM [Concomitant]
     Active Substance: MIDAZOLAM
     Dates: start: 20171101

REACTIONS (6)
  - Fournier^s gangrene [Unknown]
  - Necrotising soft tissue infection [Unknown]
  - Necrotising fasciitis [Unknown]
  - Abscess limb [Unknown]
  - Sepsis [Unknown]
  - Post-traumatic stress disorder [Unknown]

NARRATIVE: CASE EVENT DATE: 20151210
